FAERS Safety Report 7906029-0 (Version None)
Quarter: 2011Q4

REPORT INFORMATION
  Report Type: 
  Country: None (occurrence: None)
  Receive Date: 20111110
  Receipt Date: 20111104
  Transmission Date: 20120403
  Serious: Yes (Other)
  Sender: FDA-Public Use
  Company Number: BE-BRISTOL-MYERS SQUIBB COMPANY-16165532

PATIENT
  Age: 75 Year
  Sex: Male
  Weight: 71 kg

DRUGS (11)
  1. BISOPROLOL [Concomitant]
     Dosage: 2 X HALF TABS
  2. PIRACETAM [Concomitant]
  3. CAPTOPRIL [Concomitant]
     Dosage: ALSO 50MG TABLET 1 TAB MORNING,1/2 TAB NOON,1 TAB EVENING
  4. LORAZEPAM [Concomitant]
     Indication: SLEEP DISORDER
     Dosage: 1DF:2 X 1/2
  5. ONGLYZA [Suspect]
     Dosage: ALSO 5 MG
     Route: 048
     Dates: start: 20110513, end: 20110917
  6. ASPIRIN [Concomitant]
  7. NEXIUM [Concomitant]
     Indication: GASTRIC DISORDER
  8. LEVOTHYROXINE SODIUM [Concomitant]
     Indication: THYROID DISORDER
  9. AMLODIPINE [Concomitant]
  10. METFORMAX [Concomitant]
  11. UNI DIAMICRON [Concomitant]
     Dosage: FREQ:4/D

REACTIONS (2)
  - PANCREATIC NEOPLASM [None]
  - CARBOHYDRATE ANTIGEN 19-9 INCREASED [None]
